FAERS Safety Report 11747073 (Version 2)
Quarter: 2015Q4

REPORT INFORMATION
  Report Type: Report from Study
  Country: ES (occurrence: ES)
  Receive Date: 20151117
  Receipt Date: 20151119
  Transmission Date: 20160304
  Serious: Yes (Death)
  Sender: FDA-Public Use
  Company Number: ES-ABBVIE-15P-144-1472293-00

PATIENT
  Sex: Female

DRUGS (1)
  1. DUODOPA [Suspect]
     Active Substance: CARBIDOPA\LEVODOPA
     Indication: PARKINSON^S DISEASE
     Route: 050
     Dates: start: 20070601, end: 20150926

REACTIONS (6)
  - Complication of device insertion [Unknown]
  - Gastric ulcer [Fatal]
  - Abdominal pain upper [Unknown]
  - Vomiting [Fatal]
  - Stoma site pain [Unknown]
  - Aspiration bronchial [Fatal]

NARRATIVE: CASE EVENT DATE: 2015
